FAERS Safety Report 6467579-X (Version None)
Quarter: 2009Q4

REPORT INFORMATION
  Report Type: 
  Country: None (occurrence: None)
  Receive Date: 20091202
  Receipt Date: 20091117
  Transmission Date: 20100525
  Serious: Yes (Other)
  Sender: FDA-Public Use
  Company Number: US-PFIZER INC-2009300922

PATIENT
  Sex: Female
  Weight: 99.773 kg

DRUGS (12)
  1. CHANTIX [Suspect]
     Indication: SMOKING CESSATION THERAPY
     Dosage: 1 MG, UNK
     Route: 048
     Dates: end: 20091116
  2. LEXAPRO [Concomitant]
     Indication: DEPRESSION
     Dosage: 10 MG, 1X/DAY
     Route: 048
  3. TRAZODONE [Concomitant]
     Indication: INSOMNIA
     Dosage: 300 MG, 1X/DAY
     Route: 048
  4. VERAPAMIL [Concomitant]
     Indication: MIGRAINE PROPHYLAXIS
     Dosage: 240 MG, 1X/DAY
     Route: 048
  5. MAXALT [Concomitant]
     Indication: MIGRAINE
     Dosage: 10 MG, UNK
     Route: 048
  6. KLONOPIN [Concomitant]
     Indication: MIGRAINE
     Dosage: FREQUENCY: AS NEEDED,
     Route: 048
  7. PROMETHAZINE HYDROCHLORIDE [Concomitant]
     Indication: NAUSEA
     Dosage: UNK
  8. CARISOPRODOL [Concomitant]
     Indication: MUSCLE SPASMS
     Dosage: FREQUENCY: AS NEEDED,
     Route: 048
  9. CARISOPRODOL [Concomitant]
     Indication: MUSCLE TIGHTNESS
  10. NORCO [Concomitant]
     Indication: PAIN
     Dosage: 7.5 MG, UNK
     Route: 048
  11. LEVOTHYROXINE [Concomitant]
     Indication: THYROID DISORDER
     Dosage: 0.1 MG, UNK
  12. ZYRTEC [Concomitant]
     Indication: HYPERSENSITIVITY
     Dosage: 10 MG, UNK
     Route: 048

REACTIONS (3)
  - EYE SWELLING [None]
  - RASH [None]
  - SWELLING FACE [None]
